FAERS Safety Report 15937029 (Version 1)
Quarter: 2019Q1

REPORT INFORMATION
  Report Type: Spontaneous
  Country: US (occurrence: US)
  Receive Date: 20190208
  Receipt Date: 20190208
  Transmission Date: 20190417
  Serious: Yes (Other)
  Sender: FDA-Public Use
  Company Number: US-AMGEN-USASP2019017563

PATIENT
  Age: 68 Year
  Sex: Female

DRUGS (2)
  1. ENBREL [Suspect]
     Active Substance: ETANERCEPT
     Indication: PSORIATIC ARTHROPATHY
     Dosage: UNK
     Route: 065
  2. XELJANZ XR [Suspect]
     Active Substance: TOFACITINIB CITRATE
     Indication: PSORIATIC ARTHROPATHY
     Dosage: 11 MG, UNK
     Route: 065

REACTIONS (9)
  - Psoriatic arthropathy [Not Recovered/Not Resolved]
  - Latent tuberculosis [Unknown]
  - Skin disorder [Unknown]
  - Ligament disorder [Unknown]
  - Kidney infection [Unknown]
  - Clostridium difficile colitis [Unknown]
  - Tendonitis [Unknown]
  - Gait disturbance [Unknown]
  - Nephrolithiasis [Unknown]

NARRATIVE: CASE EVENT DATE: 2017
